FAERS Safety Report 16658623 (Version 3)
Quarter: 2020Q2

REPORT INFORMATION
  Report Type: Spontaneous
  Country: US (occurrence: US)
  Receive Date: 20190801
  Receipt Date: 20200423
  Transmission Date: 20200713
  Serious: Yes (Other)
  Sender: FDA-Public Use
  Company Number: US-009507513-1907USA013741

PATIENT
  Sex: Female
  Weight: 94.42 kg

DRUGS (3)
  1. NEXPLANON [Suspect]
     Active Substance: ETONOGESTREL
     Indication: CONTRACEPTION
     Dosage: 1 IMPLANT OVER 3 YEARS
     Route: 059
     Dates: start: 20150708, end: 20180708
  2. LIDOCAINE. [Concomitant]
     Active Substance: LIDOCAINE
     Dosage: UNK
     Route: 059
     Dates: start: 20181212
  3. NEXPLANON [Suspect]
     Active Substance: ETONOGESTREL
     Dosage: 1 IMPLANT IN LEFT ARM
     Route: 058
     Dates: start: 20181212, end: 20190116

REACTIONS (14)
  - Cellulitis [Unknown]
  - Smear cervix abnormal [Unknown]
  - Cervical dysplasia [Unknown]
  - Device expulsion [Recovered/Resolved]
  - Implant site infection [Unknown]
  - Product quality issue [Unknown]
  - Implant site swelling [Unknown]
  - Implant site pain [Unknown]
  - Keloid scar [Not Recovered/Not Resolved]
  - Human papilloma virus test positive [Unknown]
  - Multiple injuries [Unknown]
  - Implant site oedema [Unknown]
  - Implant site induration [Unknown]
  - Bartholin^s cyst [Unknown]

NARRATIVE: CASE EVENT DATE: 20180319
